FAERS Safety Report 23466767 (Version 2)
Quarter: 2024Q1

REPORT INFORMATION
  Report Type: Report from Study
  Country: US (occurrence: None)
  Receive Date: 20240201
  Receipt Date: 20240222
  Transmission Date: 20240410
  Serious: Yes (Other)
  Sender: FDA-Public Use
  Company Number: 2024A019770

PATIENT
  Age: 92 Year
  Sex: Female

DRUGS (1)
  1. BREZTRI [Suspect]
     Active Substance: BUDESONIDE\FORMOTEROL\GLYCOPYRROLATE
     Indication: Chronic obstructive pulmonary disease
     Dosage: 2 PUFFS
     Route: 055

REACTIONS (8)
  - Dyskinesia [Unknown]
  - Fall [Unknown]
  - Osteoporosis [Unknown]
  - Upper limb fracture [Unknown]
  - Memory impairment [Unknown]
  - Device difficult to use [Unknown]
  - Device use issue [Unknown]
  - Device defective [Unknown]
